FAERS Safety Report 14311811 (Version 1)
Quarter: 2017Q4

REPORT INFORMATION
  Report Type: Spontaneous
  Country: US (occurrence: US)
  Receive Date: 20171221
  Receipt Date: 20171221
  Transmission Date: 20180321
  Serious: No
  Sender: FDA-Public Use
  Company Number: PHEH2017US041210

PATIENT

DRUGS (2)
  1. DOCETAXEL. [Suspect]
     Active Substance: DOCETAXEL
     Indication: PRODUCT USED FOR UNKNOWN INDICATION
     Dosage: UNK
     Route: 065
     Dates: start: 20130808, end: 20131120
  2. TAXOTERE [Suspect]
     Active Substance: DOCETAXEL
     Indication: PRODUCT USED FOR UNKNOWN INDICATION
     Dosage: UNK
     Route: 065
     Dates: start: 20130808, end: 20131120

REACTIONS (8)
  - Emotional distress [Unknown]
  - Anhedonia [Unknown]
  - Deformity [Not Recovered/Not Resolved]
  - Anxiety [Unknown]
  - Discomfort [Unknown]
  - Injury [Unknown]
  - Pain [Unknown]
  - Alopecia [Not Recovered/Not Resolved]
